FAERS Safety Report 5414854-3 (Version None)
Quarter: 2007Q3

REPORT INFORMATION
  Report Type: 
  Country: None (occurrence: None)
  Receive Date: 20070815
  Receipt Date: 20070808
  Transmission Date: 20080115
  Serious: Yes (Other)
  Sender: FDA-Public Use
  Company Number: PHBS2007JP13316

PATIENT
  Age: 70 Year
  Sex: Male

DRUGS (5)
  1. TEGRETOL [Suspect]
     Indication: EPILEPSY
     Route: 048
  2. MEILAX [Suspect]
     Dosage: 2 MG/DAY
     Route: 065
     Dates: start: 20030901, end: 20040101
  3. MEILAX [Suspect]
     Dosage: 1 MG/DAY
     Route: 065
     Dates: start: 20040101
  4. VITAMEDIN CAPSULE [Suspect]
     Dosage: 50 G/DAY
     Route: 065
     Dates: start: 20070601
  5. HANGE-SHASHIN-TO [Suspect]
     Dosage: 2.5 G/DAY
     Route: 065
     Dates: start: 20050501

REACTIONS (1)
  - DEAFNESS [None]
